FAERS Safety Report 5892400-8 (Version None)
Quarter: 2008Q3

REPORT INFORMATION
  Report Type: 
  Country: None (occurrence: None)
  Receive Date: 20080923
  Receipt Date: 20080911
  Transmission Date: 20090109
  Serious: Yes (Other)
  Sender: FDA-Public Use
  Company Number: GB-RANBAXY-2008RR-17992

PATIENT
  Age: 35 Year
  Sex: Female

DRUGS (2)
  1. FLUCONAZOLE [Suspect]
     Indication: CANDIDIASIS
     Route: 048
  2. FLUTICASOLE [Suspect]
     Indication: CANDIDIASIS
     Route: 048

REACTIONS (2)
  - DRUG ERUPTION [None]
  - VULVAL DISORDER [None]
